FAERS Safety Report 7297432-3 (Version None)
Quarter: 2011Q1

REPORT INFORMATION
  Report Type: 
  Country: None (occurrence: None)
  Receive Date: 20110204
  Receipt Date: 20110121
  Transmission Date: 20110831
  Serious: Yes (Other)
  Sender: FDA-Public Use
  Company Number: 1000018570

PATIENT
  Age: 31 Year
  Sex: Male

DRUGS (1)
  1. ESCITALOPRAM [Suspect]
     Dosage: (1 IN 1 D) ; 40 MG (40 MG,1 IN 1 D)

REACTIONS (4)
  - ALOPECIA [None]
  - OVERDOSE [None]
  - CONDITION AGGRAVATED [None]
  - OBSESSIVE-COMPULSIVE DISORDER [None]
